FAERS Safety Report 5312238-X (Version None)
Quarter: 2007Q2

REPORT INFORMATION
  Report Type: 
  Country: None (occurrence: None)
  Receive Date: 20070430
  Receipt Date: 20060929
  Transmission Date: 20071010
  Serious: No
  Sender: FDA-Public Use
  Company Number: 2006UW19005

PATIENT
  Age: 76 Year
  Sex: Male
  Weight: 59 kg

DRUGS (8)
  1. NEXIUM [Suspect]
     Indication: GASTROOESOPHAGEAL SPHINCTER INSUFFICIENCY
     Route: 048
     Dates: start: 20040101
  2. NEXIUM [Suspect]
     Indication: HIATUS HERNIA
     Route: 048
     Dates: start: 20040101
  3. INDERAL [Concomitant]
  4. COZAAR [Concomitant]
  5. LANOXIN [Concomitant]
  6. LASIX [Concomitant]
  7. COUMADIN [Concomitant]
  8. PROZAC [Concomitant]

REACTIONS (1)
  - SALIVA ALTERED [None]
